FAERS Safety Report 19106466 (Version 5)
Quarter: 2021Q3

REPORT INFORMATION
  Report Type: Spontaneous
  Country: CA (occurrence: CA)
  Receive Date: 20210407
  Receipt Date: 20210922
  Transmission Date: 20211014
  Serious: Yes (Other)
  Sender: FDA-Public Use
  Company Number: CA-CELLTRION INC.-2019CA020001

PATIENT

DRUGS (26)
  1. INFLECTRA [Suspect]
     Active Substance: INFLIXIMAB-DYYB
     Dosage: 1600 MG EVERY 6 WEEKS
     Route: 042
     Dates: start: 20201123
  2. CLOBETASOL [Concomitant]
     Active Substance: CLOBETASOL
     Indication: PYODERMA GANGRENOSUM
     Dosage: UNK
     Route: 065
  3. INFLECTRA [Suspect]
     Active Substance: INFLIXIMAB-DYYB
     Dosage: 1400 MG EVERY 8 WEEKS
     Route: 042
     Dates: start: 20190402, end: 20191112
  4. INFLECTRA [Suspect]
     Active Substance: INFLIXIMAB-DYYB
     Dosage: 1400 MG, EVERY 8 WEEKS
     Route: 042
     Dates: start: 20190917
  5. INFLECTRA [Suspect]
     Active Substance: INFLIXIMAB-DYYB
     Dosage: 1600 MG EVERY 6 WEEKS (DISCONTINUED)
     Route: 042
     Dates: start: 20191223
  6. INFLECTRA [Suspect]
     Active Substance: INFLIXIMAB-DYYB
     Dosage: 1600 MG EVERY 6 WEEKS
     Route: 042
     Dates: start: 20200205
  7. INFLECTRA [Suspect]
     Active Substance: INFLIXIMAB-DYYB
     Dosage: 1300 MG EVERY 6 WEEKS
     Route: 042
     Dates: start: 20210329
  8. METHOTREXATE. [Concomitant]
     Active Substance: METHOTREXATE
     Indication: COLITIS
     Dosage: UNK, WEEKLY
     Route: 065
     Dates: start: 20180620
  9. INFLECTRA [Suspect]
     Active Substance: INFLIXIMAB-DYYB
     Indication: CROHN^S DISEASE
     Dosage: 800 MG, AT 0, 2, 6 WEEKS, THEN EVERY 8 WEEKS
     Route: 042
     Dates: start: 20180707, end: 20190202
  10. INFLECTRA [Suspect]
     Active Substance: INFLIXIMAB-DYYB
     Dosage: 1600 MG EVERY 6 WEEKS
     Route: 042
     Dates: start: 20200720
  11. PREDNISONE. [Concomitant]
     Active Substance: PREDNISONE
     Dosage: 70 MG, DAILY
     Route: 065
  12. INFLECTRA [Suspect]
     Active Substance: INFLIXIMAB-DYYB
     Dosage: 800 MG, AT 0, 2, 6 WEEKS, THEN EVERY 8 WEEKS
     Route: 042
     Dates: start: 20190202
  13. INFLECTRA [Suspect]
     Active Substance: INFLIXIMAB-DYYB
     Dosage: 1600 MG EVERY 6 WEEKS
     Route: 042
     Dates: start: 20200608
  14. INFLECTRA [Suspect]
     Active Substance: INFLIXIMAB-DYYB
     Dosage: 1600 MG EVERY 6 WEEKS
     Route: 042
     Dates: start: 20200608
  15. INFLECTRA [Suspect]
     Active Substance: INFLIXIMAB-DYYB
     Dosage: 1600 MG EVERY 6 WEEKS
     Route: 042
     Dates: start: 20200720
  16. INFLECTRA [Suspect]
     Active Substance: INFLIXIMAB-DYYB
     Dosage: 1300 MG EVERY 6 WEEKS
     Route: 042
     Dates: start: 20210510
  17. INFLECTRA [Suspect]
     Active Substance: INFLIXIMAB-DYYB
     Dosage: 1300 MG EVERY 6 WEEKS
     Route: 042
     Dates: start: 20210621
  18. METHOTREXATE. [Concomitant]
     Active Substance: METHOTREXATE
     Dosage: 15 MG, WEEKLY
     Route: 065
     Dates: start: 20180628
  19. INFLECTRA [Suspect]
     Active Substance: INFLIXIMAB-DYYB
     Dosage: 1600 MG EVERY 6 WEEKS
     Route: 042
     Dates: start: 20200318
  20. INFLECTRA [Suspect]
     Active Substance: INFLIXIMAB-DYYB
     Dosage: 1300 MG EVERY 6 WEEKS
     Route: 042
     Dates: start: 20210801
  21. INFLECTRA [Suspect]
     Active Substance: INFLIXIMAB-DYYB
     Dosage: 1300 MG EVERY 6 WEEKS
     Route: 042
     Dates: start: 20210913
  22. INFLECTRA [Suspect]
     Active Substance: INFLIXIMAB-DYYB
     Dosage: 1400 MG, EVERY 8 WEEKS
     Route: 042
     Dates: start: 20190723
  23. INFLECTRA [Suspect]
     Active Substance: INFLIXIMAB-DYYB
     Dosage: 1400 MG, EVERY 8 WEEKS
     Route: 042
     Dates: start: 20191112
  24. INFLECTRA [Suspect]
     Active Substance: INFLIXIMAB-DYYB
     Dosage: 1600 MG EVERY 6 WEEKS
     Route: 042
     Dates: start: 20201012
  25. INFLECTRA [Suspect]
     Active Substance: INFLIXIMAB-DYYB
     Dosage: 1300 MG EVERY 6 WEEKS
     Route: 042
  26. FLOVENT [Concomitant]
     Active Substance: FLUTICASONE PROPIONATE
     Indication: PYODERMA GANGRENOSUM
     Dosage: UNK
     Route: 065

REACTIONS (16)
  - Heart rate decreased [Unknown]
  - Off label use [Unknown]
  - Intentional product use issue [Unknown]
  - Non-alcoholic steatohepatitis [Not Recovered/Not Resolved]
  - Blood pressure increased [Unknown]
  - Weight increased [Not Recovered/Not Resolved]
  - Weight abnormal [Unknown]
  - Body mass index increased [Unknown]
  - Limb discomfort [Unknown]
  - Stress [Unknown]
  - Hepatic enzyme increased [Not Recovered/Not Resolved]
  - Cystitis [Not Recovered/Not Resolved]
  - Product use issue [Unknown]
  - Drug level below therapeutic [Unknown]
  - Type 2 diabetes mellitus [Not Recovered/Not Resolved]
  - Metabolic syndrome [Not Recovered/Not Resolved]

NARRATIVE: CASE EVENT DATE: 20181010
